FAERS Safety Report 9272588 (Version 2)
Quarter: 2013Q2

REPORT INFORMATION
  Report Type: Spontaneous
  Country: BR (occurrence: BR)
  Receive Date: 20130506
  Receipt Date: 20130528
  Transmission Date: 20140414
  Serious: Yes (Other)
  Sender: FDA-Public Use
  Company Number: BR-GLAXOSMITHKLINE-B0889454A

PATIENT
  Age: 65 Year
  Sex: Male

DRUGS (14)
  1. RYTHMOL [Suspect]
     Indication: PRODUCT USED FOR UNKNOWN INDICATION
     Dosage: 600MG PER DAY
     Route: 048
  2. PANTOPRAZOLE [Concomitant]
     Indication: HYPERTENSION
     Dosage: 80MG PER DAY
  3. ATACAND [Concomitant]
     Indication: HYPERTENSION
     Dosage: 1TAB PER DAY
  4. SELOZOK [Concomitant]
     Dosage: 2TAB PER DAY
  5. ALLOPURINOL [Concomitant]
     Indication: BLOOD URIC ACID
     Dosage: 1TAB PER DAY
  6. ACETYLSALICYLIC ACID [Concomitant]
     Indication: THROMBOSIS PROPHYLAXIS
     Dosage: 1TAB PER DAY
  7. SIMVASTATIN [Concomitant]
     Dosage: 1TAB PER DAY
  8. MOVATEC [Concomitant]
     Indication: GASTROINTESTINAL DISORDER
     Dosage: 1TAB PER DAY
  9. OMNIC [Concomitant]
     Indication: URETHRAL DISORDER
     Dosage: 1TAB PER DAY
  10. LEXOTAN [Concomitant]
     Indication: SLEEP DISORDER
     Dosage: 1TAB AT NIGHT
  11. LUFTAL [Concomitant]
     Indication: FLATULENCE
  12. NEOSALDINA [Concomitant]
     Indication: HEADACHE
  13. MELOXICAM [Concomitant]
     Indication: GOUT
  14. COLCHICINE [Concomitant]
     Indication: GOUT

REACTIONS (1)
  - Cardiac ablation [Recovered/Resolved]
